FAERS Safety Report 9386837 (Version 1)
Quarter: 2013Q3

REPORT INFORMATION
  Report Type: Spontaneous
  Country: DE (occurrence: None)
  Receive Date: 20130702
  Receipt Date: 20130702
  Transmission Date: 20140515
  Serious: Yes (Hospitalization)
  Sender: FDA-Public Use
  Company Number: ACO_37109_2013

PATIENT
  Age: 55 Year
  Sex: Female

DRUGS (2)
  1. FAMPYRA [Suspect]
     Indication: GAIT DISTURBANCE
     Route: 048
     Dates: start: 20111027
  2. AVONEX (INTERFERON-BETA-1A) [Concomitant]

REACTIONS (4)
  - Malaise [None]
  - Asthenia [None]
  - Hypertension [None]
  - Multiple sclerosis relapse [None]
